FAERS Safety Report 9303120 (Version 2)
Quarter: 2013Q3

REPORT INFORMATION
  Report Type: Spontaneous
  Country: US (occurrence: US)
  Receive Date: 20130522
  Receipt Date: 20130731
  Transmission Date: 20140515
  Serious: Yes (Hospitalization)
  Sender: FDA-Public Use
  Company Number: PHEH2013US011116

PATIENT
  Age: 82 Year
  Sex: Male
  Weight: 73.8 kg

DRUGS (7)
  1. EXJADE [Suspect]
     Indication: THALASSAEMIA
     Dosage: 500 MG, QID
     Route: 048
     Dates: start: 20130410, end: 20130417
  2. EXJADE [Suspect]
     Indication: IRON METABOLISM DISORDER
     Dosage: 375 MG, DAILY
     Route: 048
     Dates: start: 20130501, end: 20130510
  3. SPIRONOLACTONE [Concomitant]
     Indication: OEDEMA
     Dosage: 100 MG, DAILY
     Route: 048
     Dates: start: 20130408
  4. FELODIPINE [Concomitant]
     Indication: HYPERTENSION
     Dosage: 5 MG, DAILY
     Route: 048
  5. MVI [Concomitant]
     Dosage: 1 DF, DAILY
     Route: 048
  6. METAMUCIL [Concomitant]
     Dosage: 3.4 G, DAILY
     Route: 048
  7. VITAMIN D3 [Concomitant]
     Dosage: 2000 IU, DAILY
     Route: 048

REACTIONS (8)
  - Hyperkalaemia [Recovered/Resolved]
  - Asthenia [Recovered/Resolved]
  - Renal impairment [Recovered/Resolved]
  - Hepatic function abnormal [Recovered/Resolved]
  - Jaundice [Recovered/Resolved]
  - Hyperbilirubinaemia [Recovered/Resolved]
  - Nausea [Recovered/Resolved]
  - Dehydration [Unknown]
